FAERS Safety Report 6209992-1 (Version None)
Quarter: 2009Q2

REPORT INFORMATION
  Report Type: 
  Country: None (occurrence: None)
  Receive Date: 20090527
  Receipt Date: 20090512
  Transmission Date: 20091009
  Serious: Yes (Life-Threatening, Hospitalization)
  Sender: FDA-Public Use
  Company Number: GXKR2009GB05755

PATIENT
  Age: 11 Year
  Sex: Female

DRUGS (2)
  1. LAMOTRIGINE [Suspect]
     Indication: EPILEPSY
     Dosage: 0.7 MG/KG
  2. VALPROIC ACID [Suspect]
     Indication: EPILEPSY
     Dosage: 300 MG, BID; 200 MG, BID, ORAL
     Route: 048

REACTIONS (25)
  - ALOPECIA [None]
  - ANTICONVULSANT DRUG LEVEL INCREASED [None]
  - BLOOD BLISTER [None]
  - COAGULOPATHY [None]
  - DIALYSIS [None]
  - DISSEMINATED INTRAVASCULAR COAGULATION [None]
  - DRUG ERUPTION [None]
  - DRUG INTERACTION [None]
  - DRUG LEVEL BELOW THERAPEUTIC [None]
  - GASTROINTESTINAL HAEMORRHAGE [None]
  - GENITAL HAEMORRHAGE [None]
  - GINGIVAL EROSION [None]
  - HEPATIC ENZYME INCREASED [None]
  - HYPERSENSITIVITY [None]
  - INTERNATIONAL NORMALISED RATIO INCREASED [None]
  - LIP BLISTER [None]
  - MUCOSAL INFLAMMATION [None]
  - MULTI-ORGAN FAILURE [None]
  - PERIORBITAL OEDEMA [None]
  - PYREXIA [None]
  - RASH MACULO-PAPULAR [None]
  - RENAL FAILURE [None]
  - RHABDOMYOLYSIS [None]
  - TOXIC SHOCK SYNDROME [None]
  - TROPONIN T INCREASED [None]
